FAERS Safety Report 6422746-6 (Version None)
Quarter: 2009Q4

REPORT INFORMATION
  Report Type: 
  Country: None (occurrence: None)
  Receive Date: 20091028
  Receipt Date: 20091014
  Transmission Date: 20100525
  Serious: Yes (Other)
  Sender: FDA-Public Use
  Company Number: DSU-2009-01494

PATIENT
  Age: 48 Year
  Sex: Female
  Weight: 69.8539 kg

DRUGS (10)
  1. WELCHOL [Suspect]
     Indication: HYPERLIPIDAEMIA
     Dosage: 3750 MG (1875 MG,BID),PER ORAL
     Route: 048
     Dates: start: 20090319
  2. WELCHOL [Suspect]
  3. COUMADIN [Concomitant]
  4. METFORMIN HCL [Concomitant]
  5. METOPROLOL [Concomitant]
  6. ALPRAZOLAM [Concomitant]
  7. ALBUTEROL [Concomitant]
  8. ZOLPIDEM [Concomitant]
  9. ASPIRIN [Concomitant]
  10. SAVELLA [Concomitant]

REACTIONS (10)
  - BASAL CELL CARCINOMA [None]
  - DISEASE RECURRENCE [None]
  - FIBROMYALGIA [None]
  - NAUSEA [None]
  - PRODUCT CONTAMINATION PHYSICAL [None]
  - PRODUCT QUALITY ISSUE [None]
  - SQUAMOUS CELL CARCINOMA OF SKIN [None]
  - SUICIDAL IDEATION [None]
  - VOMITING [None]
  - WEIGHT DECREASED [None]
